FAERS Safety Report 12126347 (Version 5)
Quarter: 2016Q3

REPORT INFORMATION
  Report Type: Spontaneous
  Country: JP (occurrence: JP)
  Receive Date: 20160229
  Receipt Date: 20160909
  Transmission Date: 20161109
  Serious: Yes (Hospitalization)
  Sender: FDA-Public Use
  Company Number: JP-SUNOVION-2016SUN000427

PATIENT
  Age: 51 Year
  Sex: Female

DRUGS (5)
  1. LUNESTA [Suspect]
     Active Substance: ESZOPICLONE
     Indication: INSOMNIA
     Dosage: 2 MG, UNK
     Route: 048
     Dates: start: 201509, end: 20151016
  2. LAMICTAL [Concomitant]
     Active Substance: LAMOTRIGINE
     Indication: DEPRESSION
  3. QUETIAPINE FUMARAT [Concomitant]
     Active Substance: QUETIAPINE FUMARATE
     Indication: BIPOLAR DISORDER
     Dosage: 12.5 MG, QD
     Route: 048
     Dates: start: 201509, end: 20151016
  4. QUETIAPINE FUMARAT [Concomitant]
     Active Substance: QUETIAPINE FUMARATE
     Indication: DEPRESSION
  5. LAMICTAL [Concomitant]
     Active Substance: LAMOTRIGINE
     Indication: BIPOLAR DISORDER
     Dosage: 25 MG, QD
     Route: 048
     Dates: start: 20151010, end: 20151013

REACTIONS (1)
  - Stevens-Johnson syndrome [Recovering/Resolving]

NARRATIVE: CASE EVENT DATE: 20151017
